FAERS Safety Report 10413457 (Version 12)
Quarter: 2016Q4

REPORT INFORMATION
  Report Type: Spontaneous
  Country: US (occurrence: US)
  Receive Date: 20140827
  Receipt Date: 20161020
  Transmission Date: 20170206
  Serious: Yes (Hospitalization, Other)
  Sender: FDA-Public Use
  Company Number: US-009507513-97062576

PATIENT
  Sex: Female
  Weight: 72.56 kg

DRUGS (3)
  1. ALENDRONATE SODIUM. [Suspect]
     Active Substance: ALENDRONATE SODIUM
     Indication: OSTEOPOROSIS
     Dosage: 70 MG, QW
     Route: 048
     Dates: start: 20090113, end: 20110907
  2. FOSAMAX [Suspect]
     Active Substance: ALENDRONATE SODIUM
     Dosage: 70 MG, QW
     Route: 048
     Dates: start: 20080731
  3. FOSAMAX [Suspect]
     Active Substance: ALENDRONATE SODIUM
     Indication: OSTEOPOROSIS
     Dosage: 10 MG, QD
     Route: 048
     Dates: start: 1995, end: 200912

REACTIONS (36)
  - Thoracic vertebral fracture [Recovered/Resolved]
  - Dyslipidaemia [Unknown]
  - Hyperlipidaemia [Unknown]
  - Femur fracture [Unknown]
  - Haemorrhoids [Unknown]
  - Flatulence [Unknown]
  - Osteoporosis [Unknown]
  - Hypercholesterolaemia [Unknown]
  - Osteopenia [Unknown]
  - Anal fissure [Unknown]
  - Atrial fibrillation [Unknown]
  - Bladder repair [Unknown]
  - Device loosening [Unknown]
  - Spinal compression fracture [Unknown]
  - Hip fracture [Recovered/Resolved]
  - Tooth disorder [Unknown]
  - Osteoarthritis [Unknown]
  - Diverticulum [Unknown]
  - Large intestine polyp [Unknown]
  - Scoliosis [Unknown]
  - Road traffic accident [Unknown]
  - Tachycardia [Unknown]
  - Dysphagia [Unknown]
  - Supraventricular tachycardia [Unknown]
  - Sciatica [Unknown]
  - Pubis fracture [Unknown]
  - Lower limb fracture [Unknown]
  - Spinal osteoarthritis [Unknown]
  - Chronic obstructive pulmonary disease [Unknown]
  - Kyphosis [Unknown]
  - Gastrooesophageal reflux disease [Unknown]
  - Weight decreased [Unknown]
  - Arthralgia [Unknown]
  - Haematochezia [Unknown]
  - Spinal compression fracture [Unknown]
  - Body height decreased [Unknown]

NARRATIVE: CASE EVENT DATE: 20030902
